FAERS Safety Report 15573629 (Version 2)
Quarter: 2018Q4

REPORT INFORMATION
  Report Type: Report from Study
  Country: GB (occurrence: GB)
  Receive Date: 20181101
  Receipt Date: 20181205
  Transmission Date: 20190205
  Serious: Yes (Life-Threatening, Hospitalization, Other)
  Sender: FDA-Public Use
  Company Number: GB-AUROBINDO-AUR-APL-2018-053103

PATIENT
  Age: 64 Year
  Sex: Male

DRUGS (5)
  1. NIMODIPINE. [Suspect]
     Active Substance: NIMODIPINE
     Indication: PRODUCT USED FOR UNKNOWN INDICATION
     Dosage: 840 MG, UNK
     Route: 048
  2. METFORMIN [Suspect]
     Active Substance: METFORMIN HYDROCHLORIDE
     Indication: PRODUCT USED FOR UNKNOWN INDICATION
     Dosage: 42 G, UNK
     Route: 048
  3. RISPERIDONE. [Suspect]
     Active Substance: RISPERIDONE
     Indication: PRODUCT USED FOR UNKNOWN INDICATION
     Dosage: 88 MG, UNK
     Route: 048
  4. PRAVASTATIN. [Suspect]
     Active Substance: PRAVASTATIN
     Indication: PRODUCT USED FOR UNKNOWN INDICATION
     Dosage: 840 MG, UNK
     Route: 048
  5. RANITIDINE. [Suspect]
     Active Substance: RANITIDINE
     Indication: PRODUCT USED FOR UNKNOWN INDICATION
     Dosage: 9 G, UNK
     Route: 065

REACTIONS (14)
  - Toxicity to various agents [Recovering/Resolving]
  - Intentional overdose [Recovering/Resolving]
  - Brain injury [Recovering/Resolving]
  - Nervous system disorder [Unknown]
  - Impaired work ability [Unknown]
  - Cardiovascular disorder [Recovering/Resolving]
  - Cerebral ischaemia [Recovering/Resolving]
  - Renal failure [Recovering/Resolving]
  - Cognitive disorder [Recovering/Resolving]
  - Intensive care unit acquired weakness [Recovering/Resolving]
  - Sinus bradycardia [Recovering/Resolving]
  - Lactic acidosis [Unknown]
  - Cardiogenic shock [Recovering/Resolving]
  - Hypotension [Recovering/Resolving]
